FAERS Safety Report 9919409 (Version 1)
Quarter: 2014Q1

REPORT INFORMATION
  Report Type: Spontaneous
  Country: BG (occurrence: BG)
  Receive Date: 20140224
  Receipt Date: 20140224
  Transmission Date: 20141002
  Serious: Yes (Death)
  Sender: FDA-Public Use
  Company Number: BG-UCBSA-112903

PATIENT
  Age: 61 Year
  Sex: Male

DRUGS (3)
  1. CIMZIA [Suspect]
     Indication: RHEUMATOID ARTHRITIS
     Route: 058
     Dates: start: 201207, end: 201312
  2. EUTHIROX [Concomitant]
     Indication: HYPOTHYROIDISM
     Route: 048
  3. CONCOR [Concomitant]
     Indication: HYPERTONIA
     Route: 048

REACTIONS (1)
  - Cardiac disorder [Fatal]
